FAERS Safety Report 8293470-2 (Version None)
Quarter: 2012Q2

REPORT INFORMATION
  Report Type: 
  Country: None (occurrence: None)
  Receive Date: 20120417
  Receipt Date: 20120403
  Transmission Date: 20120825
  Serious: Yes (Life-Threatening, Other)
  Sender: FDA-Public Use
  Company Number: JP-RB-037675-12

PATIENT
  Sex: Female

DRUGS (11)
  1. PENTAZOCINE LACTATE [Suspect]
     Indication: ANALGESIC THERAPY
     Route: 042
     Dates: start: 20120123, end: 20120123
  2. AMLODIPINE BESYLATE [Concomitant]
     Indication: PRODUCT USED FOR UNKNOWN INDICATION
     Route: 065
     Dates: start: 20120104
  3. HEPARIN AND PREPARATIONS [Concomitant]
     Indication: PRODUCT USED FOR UNKNOWN INDICATION
     Dosage: 4 ML/HR
     Route: 065
  4. URSODIOL [Concomitant]
     Indication: PRODUCT USED FOR UNKNOWN INDICATION
     Route: 065
     Dates: start: 20111229
  5. LANSOPRAZOLE [Concomitant]
     Indication: PRODUCT USED FOR UNKNOWN INDICATION
     Route: 065
     Dates: start: 20111229
  6. ANTIBIOTIC-RESISTANT LACTIC ACID BACTERIAE [Concomitant]
     Indication: PRODUCT USED FOR UNKNOWN INDICATION
     Route: 065
     Dates: start: 20111229
  7. HYDROXYZINE HYDROCHLORIDE [Concomitant]
     Indication: PRODUCT USED FOR UNKNOWN INDICATION
     Route: 065
     Dates: start: 20120123, end: 20120123
  8. BUPRENORPHINE HCL [Suspect]
     Indication: ANALGESIC THERAPY
     Route: 042
     Dates: start: 20120123, end: 20120123
  9. ISOTONIC SODIUM CHLORIDE SOLUTION [Concomitant]
     Indication: PRODUCT USED FOR UNKNOWN INDICATION
     Dosage: 4 ML/HR
     Route: 065
  10. FERRIC PYROPHOSPHATE [Concomitant]
     Indication: PRODUCT USED FOR UNKNOWN INDICATION
     Route: 065
     Dates: start: 20111229
  11. AMBROXOL HYDROCHLORIDE [Concomitant]
     Indication: PRODUCT USED FOR UNKNOWN INDICATION
     Route: 065
     Dates: start: 20111229

REACTIONS (4)
  - SOMNOLENCE [None]
  - RESPIRATORY DEPRESSION [None]
  - GLOSSOPTOSIS [None]
  - CARDIO-RESPIRATORY ARREST [None]
